FAERS Safety Report 16772167 (Version 1)
Quarter: 2019Q4

REPORT INFORMATION
  Report Type: Spontaneous
  Country: US (occurrence: US)
  Receive Date: 20190904
  Receipt Date: 20190904
  Transmission Date: 20200122
  Serious: Yes (Disabling)
  Sender: FDA-Public Use
  Company Number: None

PATIENT
  Age: 49 Year
  Sex: Male
  Weight: 103.5 kg

DRUGS (1)
  1. OXYCODONE AND ACETAMINOPHEN [Suspect]
     Active Substance: ACETAMINOPHEN\OXYCODONE HYDROCHLORIDE
     Indication: PAIN
     Dosage: ?          QUANTITY:84 CAPSULE(S);?
     Route: 048
     Dates: start: 20190827, end: 20190904

REACTIONS (3)
  - Pain [None]
  - Suspected product quality issue [None]
  - Treatment failure [None]

NARRATIVE: CASE EVENT DATE: 20190827
